FAERS Safety Report 6784125-1 (Version None)
Quarter: 2010Q2

REPORT INFORMATION
  Report Type: 
  Country: None (occurrence: None)
  Receive Date: 20100622
  Receipt Date: 20100610
  Transmission Date: 20101027
  Serious: Yes (Hospitalization, Other)
  Sender: FDA-Public Use
  Company Number: US-WYE-H15649010

PATIENT
  Sex: Female
  Weight: 54.48 kg

DRUGS (1)
  1. EFFEXOR XR [Suspect]
     Indication: DEPRESSION
     Dosage: UNKNOWN
     Route: 048
     Dates: start: 20070101

REACTIONS (3)
  - BREAST CANCER [None]
  - HEPATIC ENZYME INCREASED [None]
  - WHITE BLOOD CELL COUNT DECREASED [None]
